FAERS Safety Report 8236730-3 (Version None)
Quarter: 2012Q1

REPORT INFORMATION
  Report Type: 
  Country: None (occurrence: None)
  Receive Date: 20120323
  Receipt Date: 20120314
  Transmission Date: 20120608
  Serious: Yes (Hospitalization)
  Sender: FDA-Public Use
  Company Number: AUR-APL-2012-01510

PATIENT
  Age: 62 Year
  Sex: Male
  Weight: 131 kg

DRUGS (6)
  1. METFORMIN HCL [Suspect]
     Indication: PRODUCT USED FOR UNKNOWN INDICATION
     Dosage: UNKNOWN
     Dates: end: 20120229
  2. MAXZIDE [Suspect]
     Indication: HYPERTENSION
     Dosage: 75/50 MG (1 IN 1 D), ORAL
     Route: 048
  3. METAGLIP (METAGLIP) [Concomitant]
  4. NEXIUM [Concomitant]
  5. LISINOPRIL [Suspect]
     Indication: HYPERTENSION
     Dosage: 10 MG (10 MG, 1 IN 1 D), ORAL
     Route: 048
     Dates: start: 20111128, end: 20120229
  6. CELECOXIB; IBUPROFEN | NAPROXEN; PLACEBO [Suspect]
     Indication: RHEUMATOID ARTHRITIS
     Dosage: (3 IN 1 D), ORAL
     Route: 048
     Dates: start: 20110825, end: 20120229

REACTIONS (1)
  - RENAL FAILURE ACUTE [None]
